FAERS Safety Report 5376369-0 (Version None)
Quarter: 2007Q3

REPORT INFORMATION
  Report Type: 
  Country: None (occurrence: None)
  Receive Date: 20070702
  Receipt Date: 20070618
  Transmission Date: 20080115
  Serious: Yes (Hospitalization)
  Sender: FDA-Public Use
  Company Number: DE-PURDUE-DEU_2007_0003031

PATIENT
  Age: 78 Year
  Sex: Male
  Weight: 112 kg

DRUGS (18)
  1. OXYCODON 10MG / NALOXON 5MG [Suspect]
     Indication: PAIN IN EXTREMITY
     Dosage: 20 MG, DAILY
     Route: 048
     Dates: start: 20070216, end: 20070216
  2. OXYCODON 10MG / NALOXON 5MG [Suspect]
     Dosage: 30 MG, DAILY
     Route: 048
     Dates: start: 20070213, end: 20070215
  3. OXYCODON 10MG / NALOXON 5MG [Suspect]
     Dosage: 10 MG, DAILY
     Route: 048
     Dates: start: 20070212, end: 20070212
  4. TAMSULOSIN HCL [Concomitant]
  5. ZYLORIC ^FRESENIUS^ [Concomitant]
  6. RAMIPRIL [Concomitant]
  7. PLAVIX [Concomitant]
  8. DIOVAN HCT [Concomitant]
  9. LYRICA [Concomitant]
  10. HUMINSULIN NORMAL [Concomitant]
  11. LIPOTALON [Concomitant]
  12. BISACODYL [Concomitant]
     Route: 048
     Dates: start: 20061110, end: 20070211
  13. OXYCODONE HYDROCHLORIDE [Suspect]
     Route: 048
     Dates: start: 20061109, end: 20061109
  14. OXYCODONE HYDROCHLORIDE [Suspect]
     Dosage: 30 MG, DAILY
     Route: 048
     Dates: start: 20061110, end: 20070211
  15. OXYCODONE HYDROCHLORIDE [Suspect]
     Dosage: 20 MG, DAILY
     Route: 048
     Dates: start: 20070212, end: 20070212
  16. PANTOPRAZOLE SODIUM [Concomitant]
  17. BELOC ZOK [Concomitant]
  18. SIMVASTATIN [Concomitant]

REACTIONS (1)
  - CEREBROVASCULAR ACCIDENT [None]
